FAERS Safety Report 8572828 (Version 2)
Quarter: 2012Q4

REPORT INFORMATION
  Report Type: 
  Country: US (occurrence: US)
  Receive Date: 20120522
  Receipt Date: 20121015
  Transmission Date: 20130627
  Serious: Yes (Hospitalization)
  Sender: FDA-Public Use
  Company Number: US-BAYER-2012-046872

PATIENT
  Age: 23 Year
  Sex: Female

DRUGS (7)
  1. YASMIN [Suspect]
     Indication: ACNE
     Dosage: UNK
     Dates: start: 1999, end: 2011
  2. YASMIN [Suspect]
     Indication: PREMENSTRUAL SYNDROME
  3. YAZ [Suspect]
     Indication: ACNE
     Dosage: UNK
     Dates: start: 1999, end: 2011
  4. YAZ [Suspect]
     Indication: PREMENSTRUAL SYNDROME
  5. OCELLA [Suspect]
     Indication: ACNE
     Dosage: UNK
     Dates: start: 1999, end: 2011
  6. OCELLA [Suspect]
     Indication: PREMENSTRUAL SYNDROME
  7. MULTIVITAMINS [Concomitant]

REACTIONS (8)
  - Gallbladder injury [None]
  - Cholecystitis acute [None]
  - Injury [None]
  - Pain [None]
  - General physical health deterioration [None]
  - Anxiety [None]
  - Emotional distress [None]
  - General physical health deterioration [None]
